FAERS Safety Report 17634870 (Version 2)
Quarter: 2020Q3

REPORT INFORMATION
  Report Type: Report from Study
  Country: DE (occurrence: DE)
  Receive Date: 20200407
  Receipt Date: 20200702
  Transmission Date: 20201102
  Serious: Yes (Hospitalization, Other)
  Sender: FDA-Public Use
  Company Number: DE-BRISTOL-MYERS SQUIBB COMPANY-BMS-2018-021261

PATIENT
  Age: 61 Year
  Sex: Female

DRUGS (1)
  1. ABATACEPT [Suspect]
     Active Substance: ABATACEPT
     Indication: RHEUMATOID ARTHRITIS
     Dosage: 125 MILLIGRAM, QWK
     Route: 058
     Dates: start: 20171223, end: 20200207

REACTIONS (6)
  - Hiatus hernia [Unknown]
  - Barrett^s oesophagus [Unknown]
  - Nasopharyngitis [Not Recovered/Not Resolved]
  - Anaemia [Unknown]
  - Influenza like illness [Recovered/Resolved]
  - Reactive gastropathy [Not Recovered/Not Resolved]

NARRATIVE: CASE EVENT DATE: 20180109
